FAERS Safety Report 7005200-2 (Version None)
Quarter: 2010Q3

REPORT INFORMATION
  Report Type: 
  Country: None (occurrence: None)
  Receive Date: 20100921
  Receipt Date: 20100909
  Transmission Date: 20110219
  Serious: Yes (Death, Other)
  Sender: FDA-Public Use
  Company Number: JP-SANOFI-AVENTIS-2010SA050403

PATIENT
  Age: 70 Year
  Sex: Male
  Weight: 59 kg

DRUGS (14)
  1. OXALIPLATIN [Suspect]
     Indication: RECTAL CANCER
     Route: 041
     Dates: start: 20091210, end: 20091210
  2. OXALIPLATIN [Suspect]
     Route: 041
     Dates: start: 20100107, end: 20100107
  3. OXALIPLATIN [Suspect]
     Route: 041
     Dates: start: 20100311, end: 20100311
  4. OXALIPLATIN [Suspect]
     Route: 041
     Dates: start: 20100816, end: 20100816
  5. FLUOROURACIL [Suspect]
     Indication: RECTAL CANCER
     Route: 040
     Dates: start: 20091210, end: 20091210
  6. FLUOROURACIL [Suspect]
     Route: 041
     Dates: start: 20091210, end: 20091211
  7. FLUOROURACIL [Suspect]
     Route: 040
     Dates: start: 20100816, end: 20100816
  8. FLUOROURACIL [Suspect]
     Route: 041
     Dates: start: 20100816, end: 20100817
  9. CALCIUM LEVOFOLINATE [Concomitant]
     Indication: RECTAL CANCER
     Route: 041
     Dates: start: 20091210, end: 20091210
  10. CALCIUM LEVOFOLINATE [Concomitant]
     Route: 041
     Dates: start: 20100816, end: 20100816
  11. AVASTIN [Concomitant]
     Indication: RECTAL CANCER
     Route: 041
     Dates: start: 20091210, end: 20091210
  12. AVASTIN [Concomitant]
     Route: 041
     Dates: start: 20100107, end: 20100107
  13. KYTRIL [Concomitant]
     Indication: PREMEDICATION
     Route: 041
     Dates: start: 20091210, end: 20100816
  14. DECADRON [Concomitant]
     Indication: PREMEDICATION
     Route: 041
     Dates: start: 20091210, end: 20100816

REACTIONS (2)
  - FEBRILE NEUTROPENIA [None]
  - PULMONARY HAEMORRHAGE [None]
